FAERS Safety Report 9170952 (Version 1)
Quarter: 2013Q1

REPORT INFORMATION
  Report Type: Spontaneous
  Country: US (occurrence: US)
  Receive Date: 20130319
  Receipt Date: 20130319
  Transmission Date: 20140127
  Serious: No
  Sender: FDA-Public Use
  Company Number: US-BAYER-2013-033603

PATIENT
  Age: 10 Year
  Sex: Female
  Weight: 9.07 kg

DRUGS (1)
  1. ALEVE [Suspect]
     Dosage: 1 DF, ONCE
     Route: 048
     Dates: start: 20130313, end: 20130313

REACTIONS (1)
  - Accidental exposure to product by child [None]
